FAERS Safety Report 6923238-8 (Version None)
Quarter: 2010Q3

REPORT INFORMATION
  Report Type: 
  Country: None (occurrence: None)
  Receive Date: 20100813
  Receipt Date: 20100804
  Transmission Date: 20110219
  Serious: Yes (Other)
  Sender: FDA-Public Use
  Company Number: US-ROCHE-719196

PATIENT
  Sex: Female
  Weight: 96.8 kg

DRUGS (16)
  1. BEVACIZUMAB [Suspect]
     Indication: PRODUCT USED FOR UNKNOWN INDICATION
     Dosage: UNK
     Route: 065
     Dates: end: 20100714
  2. BLINDED RANIBIZUMAB [Suspect]
     Dosage: UNK
     Route: 031
     Dates: start: 20071010, end: 20081007
  3. BLINDED PLACEBO [Suspect]
     Dosage: UNK
     Route: 031
     Dates: start: 20071010, end: 20081007
  4. POTASSIUM CHLORIDE [Concomitant]
     Dosage: UNK
     Dates: start: 20070301
  5. ZANTAC [Concomitant]
     Dosage: UNK
     Dates: start: 20050101
  6. LANTUS [Concomitant]
     Indication: DIABETES MELLITUS
     Dosage: UNK
     Dates: start: 20051201
  7. NAVANE [Concomitant]
     Indication: SCHIZOPHRENIA
     Dosage: UNK
     Dates: start: 19990101
  8. PATANOL [Concomitant]
     Indication: SEASONAL ALLERGY
     Dosage: UNK
     Dates: start: 20060731
  9. NOVOLIN 70/30 [Concomitant]
     Dosage: UNK
     Dates: start: 20030101
  10. NASONEX [Concomitant]
     Dosage: UNK
     Dates: start: 20080829
  11. CLARITIN [Concomitant]
     Dosage: UNK
     Dates: start: 20090216
  12. DIFLUCAN [Concomitant]
     Dosage: UNK
     Dates: start: 20100430, end: 20100430
  13. METRONIDAZOLE [Concomitant]
     Dosage: UNK
     Dates: start: 20100430, end: 20100507
  14. SPECTAZOLE [Concomitant]
     Dosage: UNK
     Dates: start: 20100507, end: 20100528
  15. METRONIDAZOLE [Concomitant]
     Dosage: UNK
     Dates: start: 20100507, end: 20100528
  16. IBUPROFEN [Concomitant]
     Indication: PAIN
     Dosage: UNK
     Dates: start: 20100719, end: 20100723

REACTIONS (1)
  - ENDOPHTHALMITIS [None]
